FAERS Safety Report 7798375-9 (Version None)
Quarter: 2011Q4

REPORT INFORMATION
  Report Type: 
  Country: None (occurrence: None)
  Receive Date: 20111005
  Receipt Date: 20111003
  Transmission Date: 20120403
  Serious: Yes (Other)
  Sender: FDA-Public Use
  Company Number: JP-PFIZER INC-2011218996

PATIENT
  Age: 60 Year
  Sex: Male

DRUGS (12)
  1. ASPIRIN [Suspect]
     Dosage: UNK
     Route: 048
  2. JANUVIA [Suspect]
     Dosage: UNK
     Route: 048
  3. OMEPRAZOLE [Suspect]
     Dosage: UNK
     Route: 048
  4. MICARDIS [Suspect]
     Dosage: UNK
     Route: 048
  5. ISOSORBIDE DINITRATE [Suspect]
     Dosage: UNK
     Route: 062
  6. VARENICLINE TARTRATE [Suspect]
     Dosage: 0.5 MG, 2X/DAY
     Route: 048
     Dates: start: 20110604, end: 20110607
  7. VARENICLINE TARTRATE [Suspect]
     Dosage: 1 MG, 2X/DAY
     Route: 048
     Dates: start: 20110608, end: 20110824
  8. CRESTOR [Suspect]
     Dosage: UNK
     Route: 048
  9. PLAVIX [Suspect]
     Dosage: UNK
     Route: 048
  10. VARENICLINE TARTRATE [Suspect]
     Indication: SMOKING CESSATION THERAPY
     Dosage: 0.5 MG, 1X/DAY
     Route: 048
     Dates: start: 20110601, end: 20110603
  11. LEVOTHYROXINE SODIUM [Suspect]
     Dosage: UNK
     Route: 048
  12. HALCION [Suspect]
     Indication: INSOMNIA
     Dosage: UNK
     Route: 048

REACTIONS (3)
  - LOSS OF CONSCIOUSNESS [None]
  - DIZZINESS [None]
  - ROAD TRAFFIC ACCIDENT [None]
